FAERS Safety Report 7541686-2 (Version None)
Quarter: 2011Q2

REPORT INFORMATION
  Report Type: 
  Country: None (occurrence: None)
  Receive Date: 20110602
  Receipt Date: 20110527
  Transmission Date: 20111010
  Serious: Yes (Other)
  Sender: FDA-Public Use
  Company Number: 2011028325

PATIENT
  Age: 61 Year
  Sex: Female

DRUGS (1)
  1. VIVAGLOBIN [Suspect]
     Indication: IMMUNODEFICIENCY
     Route: 058
     Dates: start: 20110219, end: 20110219

REACTIONS (4)
  - MALAISE [None]
  - DYSPNOEA [None]
  - NO REACTION ON PREVIOUS EXPOSURE TO DRUG [None]
  - VISUAL IMPAIRMENT [None]
